FAERS Safety Report 23996736 (Version 1)
Quarter: 2024Q2

REPORT INFORMATION
  Report Type: Spontaneous
  Country: US (occurrence: US)
  Receive Date: 20240620
  Receipt Date: 20240620
  Transmission Date: 20240717
  Serious: No
  Sender: FDA-Public Use
  Company Number: US-GALDERMA-US2024001908

PATIENT

DRUGS (3)
  1. ORACEA [Suspect]
     Active Substance: DOXYCYCLINE
     Indication: Perioral dermatitis
     Dosage: 1 DOSAGE FORM, QD
     Route: 048
     Dates: start: 202401
  2. CRESTOR [Concomitant]
     Active Substance: ROSUVASTATIN CALCIUM
     Indication: Blood cholesterol increased
  3. METFORMIN [Concomitant]
     Active Substance: METFORMIN HYDROCHLORIDE
     Indication: Glucose tolerance impaired
     Dosage: 500 MG EXTENDED RELEASE

REACTIONS (3)
  - Swelling of eyelid [Recovering/Resolving]
  - Product use in unapproved indication [Recovered/Resolved]
  - Expired product administered [Recovered/Resolved]

NARRATIVE: CASE EVENT DATE: 20240101
